FAERS Safety Report 4601644-4 (Version None)
Quarter: 2005Q1

REPORT INFORMATION
  Report Type: 
  Country: None (occurrence: None)
  Receive Date: 20050308
  Receipt Date: 20050301
  Transmission Date: 20050727
  Serious: Yes (Other)
  Sender: FDA-Public Use
  Company Number: 394735

PATIENT
  Sex: Male

DRUGS (1)
  1. DILATREND [Suspect]
     Indication: CARDIAC DISORDER
     Dosage: 12.5MG PER DAY
     Route: 048

REACTIONS (3)
  - ANGINA PECTORIS [None]
  - BLOOD PRESSURE DECREASED [None]
  - DIPLOPIA [None]
